FAERS Safety Report 25770774 (Version 1)
Quarter: 2025Q3

REPORT INFORMATION
  Report Type: Report from Study
  Country: CA (occurrence: CA)
  Receive Date: 20250908
  Receipt Date: 20250908
  Transmission Date: 20251021
  Serious: Yes (Other)
  Sender: CELLTRION
  Company Number: CA-CELLTRION INC.-2025CA031421

PATIENT

DRUGS (1)
  1. OMALIZUMAB [Suspect]
     Active Substance: OMALIZUMAB
     Indication: Asthma
     Route: 058

REACTIONS (3)
  - Blood immunoglobulin E increased [Unknown]
  - Weight increased [Unknown]
  - Off label use [Unknown]
